FAERS Safety Report 12341206 (Version 1)
Quarter: 2016Q2

REPORT INFORMATION
  Report Type: Spontaneous
  Country: US (occurrence: US)
  Receive Date: 20160506
  Receipt Date: 20160506
  Transmission Date: 20160815
  Serious: No
  Sender: FDA-Public Use
  Company Number: US-TARO-2015TAR01174

PATIENT
  Age: 48 Year
  Sex: Female
  Weight: 86.17 kg

DRUGS (2)
  1. TERCONAZOLE VAGINAL CREAM 0.8% [Suspect]
     Active Substance: TERCONAZOLE
     Indication: FUNGAL INFECTION
     Dosage: 1 DOSAGE UNITS, 1X/DAY
     Route: 067
     Dates: start: 20151220, end: 20151222
  2. LUMIGAN [Concomitant]
     Active Substance: BIMATOPROST
     Dosage: 1 DOSAGE UNITS, 1X/DAY
     Route: 047

REACTIONS (2)
  - Dysmenorrhoea [Recovering/Resolving]
  - Vaginal haemorrhage [Not Recovered/Not Resolved]

NARRATIVE: CASE EVENT DATE: 20151222
